FAERS Safety Report 23429602 (Version 1)
Quarter: 2024Q1

REPORT INFORMATION
  Report Type: Spontaneous
  Country: FR (occurrence: FR)
  Receive Date: 20240122
  Receipt Date: 20240122
  Transmission Date: 20240410
  Serious: Yes (Hospitalization)
  Sender: FDA-Public Use
  Company Number: None

PATIENT
  Age: 72 Year
  Sex: Male
  Weight: 90 kg

DRUGS (12)
  1. VINCRISTINE SULFATE [Suspect]
     Active Substance: VINCRISTINE SULFATE
     Indication: Follicular lymphoma
     Dosage: 12 MG, SINGLE
     Route: 042
     Dates: start: 20181210, end: 20190402
  2. DOXORUBICIN HYDROCHLORIDE [Suspect]
     Active Substance: DOXORUBICIN HYDROCHLORIDE
     Indication: Follicular lymphoma
     Dosage: 588 MG, SINGLE
     Route: 042
     Dates: start: 20181210, end: 20190402
  3. PREDNISONE [Suspect]
     Active Substance: PREDNISONE
     Indication: Follicular lymphoma
     Dosage: 60 MG, CYCLIC (FREQ:4 D;PAR CYCLE)
     Route: 042
     Dates: start: 20181210, end: 20190402
  4. MABTHERA [Suspect]
     Active Substance: RITUXIMAB
     Indication: Follicular lymphoma
     Dosage: 750 MG, EVERY 3 WEEKS
     Route: 042
     Dates: start: 20181210
  5. MABTHERA [Suspect]
     Active Substance: RITUXIMAB
     Dosage: 1400 MG
     Dates: start: 20190626, end: 20210304
  6. CYCLOPHOSPHAMIDE [Suspect]
     Active Substance: CYCLOPHOSPHAMIDE
     Indication: Follicular lymphoma
     Dosage: 8800 MG, SINGLE
     Route: 042
     Dates: start: 20181210, end: 20190402
  7. FILGRASTIM [Concomitant]
     Active Substance: FILGRASTIM
  8. METFORMIN [Concomitant]
     Active Substance: METFORMIN HYDROCHLORIDE
  9. CETIRIZINE HYDROCHLORIDE [Concomitant]
     Active Substance: CETIRIZINE HYDROCHLORIDE
  10. DIAMICRON [Concomitant]
  11. SITAGLIPTIN [Concomitant]
     Active Substance: SITAGLIPTIN
  12. VALACYCLOVIR HYDROCHLORIDE [Concomitant]
     Active Substance: VALACYCLOVIR HYDROCHLORIDE

REACTIONS (3)
  - Cardiac failure [Recovered/Resolved with Sequelae]
  - Dilated cardiomyopathy [Recovered/Resolved with Sequelae]
  - Atrial flutter [Recovered/Resolved with Sequelae]

NARRATIVE: CASE EVENT DATE: 20191025
